FAERS Safety Report 6059876-7 (Version None)
Quarter: 2009Q1

REPORT INFORMATION
  Report Type: 
  Country: None (occurrence: None)
  Receive Date: 20090130
  Receipt Date: 20090123
  Transmission Date: 20090719
  Serious: No
  Sender: FDA-Public Use
  Company Number: US-ASTRAZENECA-2009UW02139

PATIENT
  Sex: Male
  Weight: 83.9 kg

DRUGS (9)
  1. SEROQUEL [Suspect]
     Indication: BIPOLAR DISORDER
     Route: 048
     Dates: start: 20030101
  2. SEROQUEL [Suspect]
     Route: 048
     Dates: start: 20030101
  3. SEROQUEL [Suspect]
     Dosage: REDUCED DOSE OF SEROQUEL BY 75MG QD
     Route: 048
     Dates: start: 20090101
  4. CLONOPIN [Concomitant]
  5. RESTORIL [Concomitant]
  6. COLACE [Concomitant]
  7. TOPAMAX [Concomitant]
  8. NIASPAN [Concomitant]
  9. MULTI-VITAMIN [Concomitant]

REACTIONS (2)
  - GRANULOCYTOSIS [None]
  - NEUTROPENIA [None]
